FAERS Safety Report 7202876-1 (Version None)
Quarter: 2010Q4

REPORT INFORMATION
  Report Type: 
  Country: None (occurrence: None)
  Receive Date: 20101229
  Receipt Date: 20101217
  Transmission Date: 20110411
  Serious: Yes (Other)
  Sender: FDA-Public Use
  Company Number: US-PFIZER INC-2010175883

PATIENT
  Age: 83 Year
  Sex: Female

DRUGS (6)
  1. ADVIL [Suspect]
     Dosage: 2 TABLETS, UNK FREQUENCY
     Route: 048
     Dates: start: 20090101
  2. NORVASC [Concomitant]
     Dosage: 5 MG, UNK
  3. ATENOLOL [Concomitant]
     Dosage: 50 MG, UNK
  4. MULTI-VITAMINS [Concomitant]
  5. ACETYLSALICYLIC ACID [Concomitant]
  6. VITAMIN C [Concomitant]

REACTIONS (2)
  - DRUG EFFECT DECREASED [None]
  - THROMBOSIS [None]
